FAERS Safety Report 14840959 (Version 1)
Quarter: 2018Q2

REPORT INFORMATION
  Report Type: Report from Study
  Country: US (occurrence: US)
  Receive Date: 20180503
  Receipt Date: 20180503
  Transmission Date: 20180711
  Serious: Yes (Hospitalization)
  Sender: FDA-Public Use
  Company Number: US-ROCHE-2086804

PATIENT
  Age: 63 Year
  Sex: Female
  Weight: 90.8 kg

DRUGS (2)
  1. PULMOZYME [Suspect]
     Active Substance: DORNASE ALFA
     Indication: CYSTIC FIBROSIS
     Dosage: ONGOING YES
     Route: 045
  2. ACETYLCYSTEINE. [Concomitant]
     Active Substance: ACETYLCYSTEINE
     Dosage: ONGOING YES
     Route: 065

REACTIONS (5)
  - Nasopharyngitis [Recovering/Resolving]
  - Lung infection [Recovered/Resolved]
  - Headache [Unknown]
  - Sinus congestion [Recovering/Resolving]
  - Pyrexia [Recovered/Resolved]

NARRATIVE: CASE EVENT DATE: 20180123
